FAERS Safety Report 5233588-1 (Version None)
Quarter: 2007Q1

REPORT INFORMATION
  Report Type: 
  Country: None (occurrence: None)
  Receive Date: 20061208
  Receipt Date: 20060421
  Transmission Date: 20070707
  Serious: Yes (Other)
  Sender: FDA-Public Use
  Company Number: 2006UW03515

PATIENT
  Age: 45 Year
  Sex: Female
  Weight: 58.059 kg

DRUGS (6)
  1. CRESTOR [Suspect]
     Indication: HYPERCHOLESTEROLAEMIA
     Dosage: 10 MG QD TPL
     Route: 061
     Dates: start: 20020101
  2. CRESTOR [Suspect]
     Indication: HYPERCHOLESTEROLAEMIA
     Dosage: 5 MG TPL
     Route: 061
  3. CRESTOR [Suspect]
     Indication: HYPERCHOLESTEROLAEMIA
     Dosage: 10 MG PO
     Route: 048
     Dates: end: 20060301
  4. LABETALOL HCL [Concomitant]
  5. INSULIN [Concomitant]
  6. ASPIRIN [Concomitant]

REACTIONS (4)
  - FACIAL PARESIS [None]
  - FATIGUE [None]
  - MUSCULAR WEAKNESS [None]
  - SPEECH DISORDER [None]
